FAERS Safety Report 13428658 (Version 1)
Quarter: 2017Q2

REPORT INFORMATION
  Report Type: Spontaneous
  Country: PL (occurrence: PL)
  Receive Date: 20170411
  Receipt Date: 20170411
  Transmission Date: 20170830
  Serious: Yes (Hospitalization, Other)
  Sender: FDA-Public Use
  Company Number: PL-IPSEN BIOPHARMACEUTICALS, INC.-2017-02798

PATIENT
  Sex: Female

DRUGS (7)
  1. SOMATULINE AUTOGEL 90 MG [Suspect]
     Active Substance: LANREOTIDE ACETATE
     Dosage: 120 MG
     Route: 065
  2. THYROZOL [Concomitant]
     Active Substance: METHIMAZOLE
     Dosage: 2 X 20 MG
     Dates: start: 200806, end: 200807
  3. BISOPROMERCK [Concomitant]
     Active Substance: BISOPROLOL FUMARATE
     Indication: HYPERTENSION
  4. SOMATULINE AUTOGEL 90 MG [Suspect]
     Active Substance: LANREOTIDE ACETATE
     Indication: PRODUCT USED FOR UNKNOWN INDICATION
     Dosage: 90 MG
     Route: 065
     Dates: start: 200906
  5. POLPRIL [Concomitant]
     Active Substance: RAMIPRIL
     Indication: HYPERTENSION
  6. THYROZOL [Concomitant]
     Active Substance: METHIMAZOLE
     Dosage: 1 X 20 MG
     Dates: start: 200807, end: 200906
  7. THYROZOL [Concomitant]
     Active Substance: METHIMAZOLE
     Dosage: 1 X 5 MG
     Dates: start: 200906

REACTIONS (6)
  - Renal disorder [Unknown]
  - Chronic lymphocytic leukaemia [Unknown]
  - Renal stone removal [Unknown]
  - Renal failure [Unknown]
  - Diabetes mellitus [Unknown]
  - Post procedural hypothyroidism [Unknown]

NARRATIVE: CASE EVENT DATE: 200912
